FAERS Safety Report 25762759 (Version 2)
Quarter: 2025Q3

REPORT INFORMATION
  Report Type: Spontaneous
  Country: EG (occurrence: EG)
  Receive Date: 20250904
  Receipt Date: 20250908
  Transmission Date: 20251021
  Serious: Yes (Hospitalization, Other)
  Sender: MERCK SHARP & DOHME LLC
  Company Number: EG-009507513-2323712

PATIENT
  Age: 80 Year
  Sex: Male

DRUGS (2)
  1. KEYTRUDA [Suspect]
     Active Substance: PEMBROLIZUMAB
     Indication: Renal cell carcinoma
     Route: 042
     Dates: start: 20250802
  2. INLYTA [Concomitant]
     Active Substance: AXITINIB
     Indication: Renal cell carcinoma
     Dosage: STRENGTH:5 MG
     Route: 048

REACTIONS (5)
  - Radiotherapy [Unknown]
  - Mouth haemorrhage [Recovered/Resolved]
  - Decreased immune responsiveness [Recovered/Resolved]
  - Panic attack [Unknown]
  - Product availability issue [Unknown]

NARRATIVE: CASE EVENT DATE: 20250801
